FAERS Safety Report 4430003-2 (Version None)
Quarter: 2004Q3

REPORT INFORMATION
  Report Type: 
  Country: None (occurrence: None)
  Receive Date: 20040820
  Receipt Date: 20040812
  Transmission Date: 20050211
  Serious: Yes (Hospitalization)
  Sender: FDA-Public Use
  Company Number: US-AMGEN-US087182

PATIENT
  Sex: Female

DRUGS (12)
  1. PROCRIT [Suspect]
     Indication: ANAEMIA OF MALIGNANT DISEASE
  2. SYNTHROID [Concomitant]
  3. CYTARABINE [Concomitant]
  4. IMDUR [Concomitant]
  5. PLAVIX [Concomitant]
  6. DILTIAZEM [Concomitant]
  7. PREVACID [Concomitant]
  8. ZOCOR [Concomitant]
  9. LEUKINE [Concomitant]
  10. NEUMEGA [Concomitant]
  11. METHOTREXATE SODIUM [Concomitant]
  12. DIGOXIN [Concomitant]

REACTIONS (2)
  - CONFUSIONAL STATE [None]
  - PYREXIA [None]
